FAERS Safety Report 7287456-4 (Version None)
Quarter: 2011Q1

REPORT INFORMATION
  Report Type: 
  Country: None (occurrence: None)
  Receive Date: 20110211
  Receipt Date: 20110202
  Transmission Date: 20110831
  Serious: Yes (Hospitalization)
  Sender: FDA-Public Use
  Company Number: AT-JNJFOC-20110201092

PATIENT
  Age: 29 Year
  Sex: Female

DRUGS (8)
  1. SOLIAN [Suspect]
     Indication: SCHIZOPHRENIA, PARANOID TYPE
     Route: 065
  2. TOPAMAX [Concomitant]
     Route: 065
  3. HALDOL [Suspect]
     Indication: SCHIZOPHRENIA, PARANOID TYPE
     Route: 065
  4. TEMESTA [Concomitant]
     Route: 065
  5. SEROQUEL [Concomitant]
     Route: 065
  6. CIPRALEX [Concomitant]
     Route: 065
  7. DEPAKENE [Concomitant]
     Route: 065
  8. SEROQUEL XR [Concomitant]
     Route: 065

REACTIONS (4)
  - GRAND MAL CONVULSION [None]
  - LONG QT SYNDROME [None]
  - BRADYCARDIA [None]
  - LEUKOPENIA [None]
